FAERS Safety Report 12334585 (Version 1)
Quarter: 2016Q2

REPORT INFORMATION
  Report Type: Spontaneous
  Country: PR (occurrence: PR)
  Receive Date: 20160504
  Receipt Date: 20160504
  Transmission Date: 20160815
  Serious: No
  Sender: FDA-Public Use
  Company Number: PR-BAYER-2016-078387

PATIENT
  Age: 25 Year
  Sex: Female

DRUGS (1)
  1. EOVIST [Suspect]
     Active Substance: GADOXETATE DISODIUM
     Indication: NUCLEAR MAGNETIC RESONANCE IMAGING
     Dosage: 10 ML, ONCE
     Route: 042
     Dates: start: 20160412, end: 20160412

REACTIONS (4)
  - Pruritus [None]
  - Rhinorrhoea [None]
  - Eye oedema [None]
  - Urticaria [None]

NARRATIVE: CASE EVENT DATE: 20160412
